FAERS Safety Report 11246526 (Version 3)
Quarter: 2015Q3

REPORT INFORMATION
  Report Type: Report from Study
  Country: US (occurrence: None)
  Receive Date: 20150706
  Receipt Date: 20150810
  Transmission Date: 20151125
  Serious: Yes (Hospitalization)
  Sender: FDA-Public Use
  Company Number: US-002138

PATIENT
  Age: 60 Year
  Sex: Female

DRUGS (2)
  1. GATTEX [Suspect]
     Active Substance: TEDUGLUTIDE\WATER
     Indication: SHORT-BOWEL SYNDROME
     Route: 058
     Dates: start: 20001014
  2. SOLUTIONS FOR PARENTERAL NUTRITION [Concomitant]
     Active Substance: AMINO ACIDS\DEXTROSE\ELECTROLYTES NOS

REACTIONS (6)
  - Malnutrition [None]
  - Blood disorder [None]
  - Therapy cessation [None]
  - Hypoalbuminaemia [None]
  - Drug dose omission [None]
  - Infection [None]

NARRATIVE: CASE EVENT DATE: 201506
